FAERS Safety Report 23587538 (Version 2)
Quarter: 2024Q2

REPORT INFORMATION
  Report Type: Report from Study
  Country: US (occurrence: US)
  Receive Date: 20240301
  Receipt Date: 20240515
  Transmission Date: 20240715
  Serious: No
  Sender: FDA-Public Use
  Company Number: US-SA-SAC20240223001140

PATIENT
  Age: 60 Year
  Sex: Female
  Weight: 63.5 kg

DRUGS (3)
  1. DUPIXENT [Suspect]
     Active Substance: DUPILUMAB
     Indication: Dermatitis atopic
     Dosage: 600MG, 1X
     Route: 058
  2. DUPIXENT [Suspect]
     Active Substance: DUPILUMAB
     Dosage: 300 MG, QOW
     Route: 058
     Dates: start: 20240113
  3. CODEINE [Suspect]
     Active Substance: CODEINE

REACTIONS (7)
  - Night sweats [Unknown]
  - Dysstasia [Unknown]
  - Stomatitis [Unknown]
  - Pain in extremity [Unknown]
  - Nasal septum deviation [Unknown]
  - Myalgia [Unknown]
  - Dry eye [Unknown]
